FAERS Safety Report 8276361-2 (Version None)
Quarter: 2012Q2

REPORT INFORMATION
  Report Type: 
  Country: None (occurrence: None)
  Receive Date: 20120409
  Receipt Date: 20120327
  Transmission Date: 20120825
  Serious: Yes (Other)
  Sender: FDA-Public Use
  Company Number: 7122205

PATIENT
  Age: 17 Year
  Sex: Male

DRUGS (5)
  1. DESLORATADINE [Suspect]
     Indication: INTENTIONAL OVERDOSE
     Dosage: (9 DF)
  2. GLUCOPHAGE [Suspect]
     Indication: INTENTIONAL OVERDOSE
     Dosage: (38 DF)
  3. SINGULAIR [Suspect]
     Indication: INTENTIONAL OVERDOSE
  4. LEVOTHYROXINE SODIUM [Suspect]
     Indication: INTENTIONAL OVERDOSE
     Dosage: (25 DF)
  5. MEFENAMIC ACID [Suspect]
     Indication: INTENTIONAL OVERDOSE
     Dosage: (32 DF)

REACTIONS (4)
  - MULTIPLE DRUG OVERDOSE INTENTIONAL [None]
  - MYDRIASIS [None]
  - NAUSEA [None]
  - TACHYCARDIA [None]
